FAERS Safety Report 8957170 (Version 1)
Quarter: 2012Q4

REPORT INFORMATION
  Report Type: Report from Study
  Country: BE (occurrence: BE)
  Receive Date: 20121210
  Receipt Date: 20121210
  Transmission Date: 20130627
  Serious: Yes (Hospitalization)
  Sender: FDA-Public Use
  Company Number: BE-ABBOTT-12P-013-1018090-00

PATIENT
  Age: 40 Year
  Sex: Female

DRUGS (3)
  1. HUMIRA [Suspect]
     Indication: ANKYLOSING SPONDYLITIS
     Dates: start: 20100127, end: 20120501
  2. HUMIRA [Suspect]
     Dates: start: 20120605
  3. ACECLOFENAC [Concomitant]
     Indication: ANKYLOSING SPONDYLITIS
     Dates: start: 20120419, end: 20120701

REACTIONS (3)
  - Incontinence [Recovered/Resolved]
  - Nocturia [Recovered/Resolved]
  - Bladder prolapse [Recovered/Resolved]
